FAERS Safety Report 17338622 (Version 1)
Quarter: 2020Q1

REPORT INFORMATION
  Report Type: Spontaneous
  Country: FR (occurrence: FR)
  Receive Date: 20200129
  Receipt Date: 20200129
  Transmission Date: 20200409
  Serious: Yes (Life-Threatening)
  Sender: FDA-Public Use
  Company Number: FR-SUN PHARMACEUTICAL INDUSTRIES LTD-2020RR-234872

PATIENT
  Age: 64 Year
  Sex: Male

DRUGS (2)
  1. CYAMEMAZINE [Suspect]
     Active Substance: CYAMEMAZINE
     Indication: DELIRIUM
     Dosage: 75 MILLIGRAM, UNK
     Route: 048
     Dates: start: 20191126, end: 20191130
  2. RISPERIDONE. [Suspect]
     Active Substance: RISPERIDONE
     Indication: DELIRIUM
     Dosage: 2 MILLIGRAM, UNK
     Route: 048
     Dates: start: 20191126, end: 20191130

REACTIONS (1)
  - Hepatitis fulminant [Recovering/Resolving]

NARRATIVE: CASE EVENT DATE: 20191130
